FAERS Safety Report 5109096-5 (Version None)
Quarter: 2006Q3

REPORT INFORMATION
  Report Type: 
  Country: None (occurrence: None)
  Receive Date: 20060920
  Receipt Date: 20060914
  Transmission Date: 20061208
  Serious: Yes (Hospitalization)
  Sender: FDA-Public Use
  Company Number: CZ-BRISTOL-MYERS SQUIBB COMPANY-13509500

PATIENT
  Age: 72 Year
  Sex: Male
  Weight: 81 kg

DRUGS (4)
  1. ETOPOSIDE [Suspect]
     Indication: SMALL CELL LUNG CANCER STAGE UNSPECIFIED
     Route: 042
     Dates: start: 20060702, end: 20060702
  2. CISPLATIN [Suspect]
     Indication: SMALL CELL LUNG CANCER STAGE UNSPECIFIED
     Route: 042
     Dates: start: 20060630, end: 20060630
  3. ASPIRIN [Concomitant]
     Route: 048
     Dates: start: 20040101
  4. FENTANYL [Concomitant]
     Route: 048
     Dates: start: 20040101

REACTIONS (1)
  - GENERAL PHYSICAL HEALTH DETERIORATION [None]
